FAERS Safety Report 18558084 (Version 1)
Quarter: 2020Q4

REPORT INFORMATION
  Report Type: Spontaneous
  Country: JP (occurrence: JP)
  Receive Date: 20201130
  Receipt Date: 20201130
  Transmission Date: 20210114
  Serious: Yes (Death)
  Sender: FDA-Public Use
  Company Number: JP-TAIHO ONCOLOGY  INC-JPTT200426

PATIENT
  Age: 63 Year
  Sex: Male

DRUGS (1)
  1. LONSURF [Suspect]
     Active Substance: TIPIRACIL HYDROCHLORIDE\TRIFLURIDINE
     Indication: HER2 POSITIVE GASTRIC CANCER
     Dosage: REDUCED INITIAL DOSE, DETAILS NOT REPORTED
     Route: 048

REACTIONS (3)
  - HER2 positive gastric cancer [Fatal]
  - Neutrophil count decreased [Unknown]
  - White blood cell count decreased [Unknown]
